FAERS Safety Report 6592826-3 (Version None)
Quarter: 2010Q1

REPORT INFORMATION
  Report Type: 
  Country: None (occurrence: None)
  Receive Date: 20100212
  Receipt Date: 20100129
  Transmission Date: 20100710
  Serious: Yes (Other)
  Sender: FDA-Public Use
  Company Number: US-1180663

PATIENT
  Sex: Female

DRUGS (2)
  1. OMNIPRED [Suspect]
     Dosage: (OPHTHALMIC)
     Route: 047
  2. SYSTANE EYE DROPS [Suspect]
     Dosage: (OPHTHALMIC)
     Route: 047

REACTIONS (3)
  - EPISTAXIS [None]
  - HAEMOPTYSIS [None]
  - RASH [None]
